FAERS Safety Report 21612615 (Version 1)
Quarter: 2022Q4

REPORT INFORMATION
  Report Type: Spontaneous
  Country: US (occurrence: US)
  Receive Date: 20221118
  Receipt Date: 20221118
  Transmission Date: 20230112
  Serious: No
  Sender: FDA-Public Use
  Company Number: US-BAUSCHBL-2022BNL002027

PATIENT
  Age: 88 Year
  Sex: Female

DRUGS (4)
  1. BESIVANCE [Suspect]
     Active Substance: BESIFLOXACIN
     Indication: Postoperative care
     Route: 047
     Dates: start: 20220919
  2. BESIVANCE [Suspect]
     Active Substance: BESIFLOXACIN
     Indication: Blepharitis
  3. LISINOPRIL [Concomitant]
     Active Substance: LISINOPRIL
     Indication: Product used for unknown indication
     Route: 065
  4. AMLODIPINE [Concomitant]
     Active Substance: AMLODIPINE BESYLATE
     Indication: Product used for unknown indication
     Route: 065

REACTIONS (4)
  - Blepharitis [Unknown]
  - Condition aggravated [Unknown]
  - Meibomian gland dysfunction [Unknown]
  - Oral pruritus [Unknown]

NARRATIVE: CASE EVENT DATE: 20220101
